FAERS Safety Report 17859911 (Version 1)
Quarter: 2020Q2

REPORT INFORMATION
  Report Type: Report from Study
  Country: GE (occurrence: TZ)
  Receive Date: 20200604
  Receipt Date: 20200604
  Transmission Date: 20200714
  Serious: Yes (Hospitalization)
  Sender: FDA-Public Use
  Company Number: GE-BAYER-2020-099329

PATIENT
  Age: 13 Year
  Sex: Female

DRUGS (1)
  1. PRAZIQUANTEL. [Suspect]
     Active Substance: PRAZIQUANTEL
     Indication: SCHISTOSOMIASIS BLADDER
     Dosage: UNK

REACTIONS (1)
  - Asthenia [Recovered/Resolved]
